APPROVED DRUG PRODUCT: PHENYLEPHRINE HYDROCHLORIDE
Active Ingredient: PHENYLEPHRINE HYDROCHLORIDE
Strength: 10MG/ML (10MG/ML)
Dosage Form/Route: SOLUTION;INTRAVENOUS
Application: A211920 | Product #003 | TE Code: AP1
Applicant: GLAND PHARMA LTD
Approved: Apr 8, 2021 | RLD: No | RS: No | Type: RX